FAERS Safety Report 8201149-8 (Version None)
Quarter: 2012Q1

REPORT INFORMATION
  Report Type: 
  Country: None (occurrence: None)
  Receive Date: 20120312
  Receipt Date: 20120302
  Transmission Date: 20120608
  Serious: Yes (Other)
  Sender: FDA-Public Use
  Company Number: DE-JNJFOC-20090903582

PATIENT
  Sex: Male

DRUGS (28)
  1. RISPERDAL [Suspect]
     Indication: SCHIZOPHRENIA, PARANOID TYPE
     Route: 065
     Dates: start: 20041208, end: 20060101
  2. RISPERDAL [Suspect]
     Dosage: 2MG-3MG-2MG
     Route: 065
     Dates: start: 20040329
  3. LORAZEPAM [Concomitant]
     Route: 048
     Dates: start: 20040312
  4. LORAZEPAM [Concomitant]
     Route: 048
     Dates: start: 20040201
  5. BIPERIDEN HYDROCHLORIDE TAB [Concomitant]
     Dosage: HOSPITAL ADMISSION DATE
     Route: 048
     Dates: start: 20041129
  6. RISPERDAL [Suspect]
     Route: 065
     Dates: start: 20041129
  7. BIPERIDEN HYDROCHLORIDE TAB [Concomitant]
     Dosage: IN THE MORNING
     Route: 048
     Dates: start: 20040312
  8. TRUXAL [Concomitant]
     Dates: start: 20040416
  9. RISPERDAL [Suspect]
     Route: 065
     Dates: start: 20040331
  10. HALDOL [Concomitant]
     Indication: SCHIZOPHRENIA, PARANOID TYPE
     Route: 048
     Dates: start: 20040129, end: 20040129
  11. BIPERIDEN HYDROCHLORIDE TAB [Concomitant]
     Dosage: IN THE MORNING
     Route: 048
     Dates: start: 20041208
  12. BERLINSULIN H NORMAL [Concomitant]
     Indication: DIABETES MELLITUS
     Route: 050
     Dates: start: 20051201, end: 20090301
  13. IMPROMEN [Concomitant]
     Indication: ANXIETY
     Route: 065
     Dates: start: 20040101, end: 20040101
  14. RISPERDAL [Suspect]
     Dosage: 2 MG-1MG-2MG
     Route: 065
     Dates: start: 20040312
  15. ZOPICLON [Concomitant]
     Dosage: 7.5 MG AT NIGHT
     Route: 048
     Dates: start: 20040312
  16. BIPERIDEN HYDROCHLORIDE TAB [Concomitant]
     Indication: EXTRAPYRAMIDAL DISORDER
     Route: 048
     Dates: start: 20040416
  17. BIPERIDEN HYDROCHLORIDE TAB [Concomitant]
     Route: 048
     Dates: start: 20041001
  18. BIPERIDEN HYDROCHLORIDE TAB [Concomitant]
     Route: 048
     Dates: start: 20040329
  19. LORAZEPAM [Concomitant]
     Route: 048
     Dates: start: 20040129, end: 20040129
  20. TRUXAL [Concomitant]
     Dates: start: 20040129, end: 20040129
  21. DIAZEPAM [Concomitant]
     Dates: start: 20040331
  22. ZOLOFT [Concomitant]
     Route: 048
     Dates: start: 20041001
  23. AMBROXOL [Concomitant]
     Route: 065
     Dates: start: 20041001
  24. DIAZEPAM [Concomitant]
     Dates: start: 20041129
  25. RISPERDAL [Suspect]
     Dosage: 2MG-0-3MG
     Route: 065
     Dates: start: 20040416
  26. RISPERDAL [Suspect]
     Route: 065
     Dates: start: 20040202
  27. ZOPICLON [Concomitant]
     Dosage: 7.5 MG HALF TABLET (3.75 MG) AT NIGHT
     Route: 048
     Dates: start: 20040329
  28. EMSER SOLE [Concomitant]
     Route: 055
     Dates: start: 20041001

REACTIONS (1)
  - TYPE 1 DIABETES MELLITUS [None]
